FAERS Safety Report 16737197 (Version 1)
Quarter: 2019Q3

REPORT INFORMATION
  Report Type: Spontaneous
  Country: IT (occurrence: IT)
  Receive Date: 20190823
  Receipt Date: 20190823
  Transmission Date: 20191005
  Serious: Yes (Hospitalization)
  Sender: FDA-Public Use
  Company Number: IT-TEVA-2019-IT-1096248

PATIENT
  Age: 69 Year
  Sex: Female
  Weight: 60 kg

DRUGS (1)
  1. ALLOPURINOLO TEVA [Suspect]
     Active Substance: ALLOPURINOL
     Indication: GOUT
     Dosage: 300 MILLIGRAM FOR EVERY 1 DAYS
     Route: 048
     Dates: start: 20190630, end: 20190726

REACTIONS (6)
  - Eyelid oedema [Recovering/Resolving]
  - Eosinophilia [Recovering/Resolving]
  - Lymphadenopathy [Recovering/Resolving]
  - Acute kidney injury [Recovering/Resolving]
  - Dermatitis exfoliative generalised [Recovering/Resolving]
  - Drug reaction with eosinophilia and systemic symptoms [Recovering/Resolving]

NARRATIVE: CASE EVENT DATE: 20190726
